FAERS Safety Report 9531290 (Version 1)
Quarter: 2013Q3

REPORT INFORMATION
  Report Type: Spontaneous
  Country: US (occurrence: US)
  Receive Date: 20130918
  Receipt Date: 20130918
  Transmission Date: 20140515
  Serious: Yes (Life-Threatening, Other)
  Sender: FDA-Public Use
  Company Number: US-JNJFOC-20130906016

PATIENT
  Sex: 0

DRUGS (12)
  1. DOXIL [Suspect]
     Indication: T-CELL LYMPHOMA
     Route: 042
  2. DOXIL [Suspect]
     Indication: T-CELL LYMPHOMA
     Route: 042
  3. GEMCITABINE [Suspect]
     Indication: T-CELL LYMPHOMA
     Route: 065
  4. VINORELBINE [Suspect]
     Indication: T-CELL LYMPHOMA
     Route: 065
  5. CYCLOPHOSPHAMIDE [Suspect]
     Indication: T-CELL LYMPHOMA
     Dosage: TWO CYCLES
     Route: 065
  6. METHOTREXATE [Suspect]
     Indication: T-CELL LYMPHOMA
     Route: 065
  7. CYTARABINE [Suspect]
     Indication: T-CELL LYMPHOMA
     Route: 065
  8. ETOPOSIDE [Suspect]
     Indication: T-CELL LYMPHOMA
     Route: 065
  9. DENILEUKIN DIFTITOX [Suspect]
     Indication: T-CELL LYMPHOMA
     Dosage: 2 CYCLES; 18UG/KG/DAY X 5D ONCE 21D
     Route: 065
  10. DENILEUKIN DIFTITOX [Suspect]
     Indication: T-CELL LYMPHOMA
     Dosage: 9 UG/KG/DAY; DAYS 6-10
     Route: 065
  11. VINCRISTINE [Suspect]
     Indication: PERIPHERAL T-CELL LYMPHOMA UNSPECIFIED
     Route: 065
  12. PREDNISOLONE [Suspect]
     Indication: PERIPHERAL T-CELL LYMPHOMA UNSPECIFIED
     Route: 065

REACTIONS (4)
  - Febrile neutropenia [Unknown]
  - Sepsis [Unknown]
  - Bacteraemia [Unknown]
  - Pancytopenia [Unknown]
